FAERS Safety Report 25006451 (Version 1)
Quarter: 2025Q1

REPORT INFORMATION
  Report Type: Spontaneous
  Country: ES (occurrence: ES)
  Receive Date: 20250224
  Receipt Date: 20250224
  Transmission Date: 20250409
  Serious: Yes (Hospitalization, Other)
  Sender: ABBVIE
  Company Number: ES-ABBVIE-6147034

PATIENT
  Age: 58 Year
  Sex: Male

DRUGS (1)
  1. UPADACITINIB [Suspect]
     Active Substance: UPADACITINIB
     Indication: Product used for unknown indication
     Route: 048
     Dates: start: 202409, end: 202502

REACTIONS (7)
  - Pulmonary thrombosis [Unknown]
  - Hypertriglyceridaemia [Unknown]
  - Haemorrhage [Unknown]
  - Hypertension [Unknown]
  - Pneumonitis [Unknown]
  - Pulmonary embolism [Unknown]
  - Obesity [Unknown]

NARRATIVE: CASE EVENT DATE: 20250201
